FAERS Safety Report 9106378 (Version 1)
Quarter: 2013Q1

REPORT INFORMATION
  Report Type: Spontaneous
  Country: US (occurrence: US)
  Receive Date: 20130221
  Receipt Date: 20130221
  Transmission Date: 20140127
  Serious: Yes (Hospitalization)
  Sender: FDA-Public Use
  Company Number: US-VERTEX PHARMACEUTICALS INC.-2013-002410

PATIENT
  Age: 52 Year
  Sex: Female

DRUGS (5)
  1. INCIVEK [Suspect]
     Indication: HEPATITIS C
     Dosage: UNK
     Dates: start: 20130114
  2. RIBAVIRIN [Suspect]
     Indication: HEPATITIS C
  3. PEGASYS [Suspect]
     Indication: HEPATITIS C
  4. ANTIHYPERTENSIVES [Concomitant]
     Indication: HYPERTENSION
  5. LIPID MEDICATIONS [Concomitant]
     Indication: LIPIDS INCREASED

REACTIONS (2)
  - Mental status changes [Not Recovered/Not Resolved]
  - Pancytopenia [Not Recovered/Not Resolved]
